FAERS Safety Report 22929482 (Version 3)
Quarter: 2023Q4

REPORT INFORMATION
  Report Type: Spontaneous
  Country: FR (occurrence: FR)
  Receive Date: 20230911
  Receipt Date: 20231030
  Transmission Date: 20240109
  Serious: Yes (Hospitalization)
  Sender: FDA-Public Use
  Company Number: None

PATIENT
  Age: 72 Year
  Sex: Female
  Weight: 62 kg

DRUGS (14)
  1. VALACYCLOVIR HYDROCHLORIDE [Suspect]
     Active Substance: VALACYCLOVIR HYDROCHLORIDE
     Indication: Antiviral prophylaxis
     Dosage: 1000 MILLIGRAM DAILY; 500MG MORNING AND EVENING
     Dates: start: 20230624, end: 20230810
  2. PANTOPRAZOLE [Suspect]
     Active Substance: PANTOPRAZOLE
     Indication: Dyspepsia
     Dosage: 40 MILLIGRAM DAILY; 40 MG IN THE EVENING
     Dates: start: 2017, end: 20230810
  3. RITUXIMAB [Suspect]
     Active Substance: RITUXIMAB
     Indication: Acquired haemophilia
     Dosage: C4, RITUXIMAB ((MAMMIFERE/HAMSTER/CELLULES CHO))
     Dates: start: 20230623, end: 20230623
  4. RITUXIMAB [Suspect]
     Active Substance: RITUXIMAB
     Dosage: C2, RITUXIMAB ((MAMMIFERE/HAMSTER/CELLULES CHO))
     Dates: start: 20230607, end: 20230607
  5. RITUXIMAB [Suspect]
     Active Substance: RITUXIMAB
     Dosage: C1, RITUXIMAB ((MAMMIFERE/HAMSTER/CELLULES CHO))
     Dates: start: 20230531, end: 20230531
  6. RITUXIMAB [Suspect]
     Active Substance: RITUXIMAB
     Dosage: C3, RITUXIMAB ((MAMMIFERE/HAMSTER/CELLULES CHO))
     Dates: start: 20230615, end: 20230615
  7. BACTRIM [Suspect]
     Active Substance: SULFAMETHOXAZOLE\TRIMETHOPRIM
     Indication: Antiviral prophylaxis
     Dosage: 1 DOSAGE FORMS DAILY; 1 TAB SULFAMETHOXAZOLE/TRIMETHOPRIM 400MG/80MG IN THE MORNING
     Dates: start: 20230531, end: 20230810
  8. ACETAMINOPHEN\CODEINE PHOSPHATE [Concomitant]
     Active Substance: ACETAMINOPHEN\CODEINE PHOSPHATE
     Indication: Pain
     Dosage: 3 DOSAGE FORMS DAILY; 1 TABLET EVERY 8 HOURS IF NECESSARY, FORM STRENGTH : 500 MG/30 MG
  9. POTASSIUM CHLORIDE [Concomitant]
     Active Substance: POTASSIUM CHLORIDE
     Indication: Hypokalaemia
     Dosage: 1200 MILLIGRAM DAILY; 1 CAPSULE MORNING AND EVENING
  10. ACETAMINOPHEN [Concomitant]
     Active Substance: ACETAMINOPHEN
     Indication: Pain
     Dosage: 2000 MILLIGRAM DAILY; 500 MG EVERY 6 HOURS
  11. ATORVASTATIN [Concomitant]
     Active Substance: ATORVASTATIN
     Indication: Cardiomyopathy
     Dosage: 10 MILLIGRAM DAILY; 10 MG IN THE EVENING
  12. GABAPENTIN [Concomitant]
     Active Substance: GABAPENTIN
     Indication: Post herpetic neuralgia
     Dosage: 600 MILLIGRAM DAILY; 200MG MORNING, NOON AND EVENING
  13. PREDNISONE [Concomitant]
     Active Substance: PREDNISONE
     Indication: Acquired haemophilia
     Dosage: 60 MILLIGRAM DAILY; 60MG IN THE MORNING
  14. BISOPROLOL FUMARATE [Concomitant]
     Active Substance: BISOPROLOL FUMARATE
     Indication: Cardiomyopathy
     Dosage: 2.5 MILLIGRAM DAILY; 2.5MG IN THE MORNING

REACTIONS (2)
  - Agranulocytosis [Recovered/Resolved]
  - Thrombocytopenia [Recovering/Resolving]

NARRATIVE: CASE EVENT DATE: 20230808
